FAERS Safety Report 4351061-X (Version None)
Quarter: 2004Q2

REPORT INFORMATION
  Report Type: 
  Country: None (occurrence: None)
  Receive Date: 20040427
  Receipt Date: 20040419
  Transmission Date: 20050107
  Serious: Yes (Hospitalization)
  Sender: FDA-Public Use
  Company Number: FI-JNJFOC-20040403626

PATIENT
  Age: 54 Year
  Sex: Female

DRUGS (2)
  1. INFLIXIMAB, RECOMBINANT- BLINDED (INFLIXIMAB, RECOMBINANT) LYOPHILIZED [Suspect]
     Indication: SCIATICA
     Dosage: 5 MG/KG, 1 IN 1 DAY, INTRAVENOUS
     Route: 042
     Dates: start: 20030613, end: 20030613
  2. PLACEBO (PLACEBO) LYOPHILIZED POWDER [Suspect]
     Indication: SCIATICA
     Dosage: INTRAVENOUS
     Route: 042
     Dates: start: 20030613, end: 20030613

REACTIONS (1)
  - SCIATICA [None]
